FAERS Safety Report 5537395-1 (Version None)
Quarter: 2007Q4

REPORT INFORMATION
  Report Type: 
  Country: None (occurrence: None)
  Receive Date: 20071207
  Receipt Date: 20071130
  Transmission Date: 20080405
  Serious: Yes (Hospitalization)
  Sender: FDA-Public Use
  Company Number: B0491763A

PATIENT
  Age: 67 Year
  Sex: Female
  Weight: 54 kg

DRUGS (5)
  1. ARIXTRA [Suspect]
     Indication: THROMBOSIS PROPHYLAXIS
     Dosage: 2.5MG PER DAY
     Route: 058
     Dates: start: 20071005, end: 20071021
  2. HOKUNALIN [Concomitant]
     Indication: ASTHMA
     Dosage: 2MG PER DAY
     Route: 062
  3. THEO-DUR [Concomitant]
     Indication: ASTHMA
     Dosage: 400MG PER DAY
     Route: 048
  4. FLUTIDE [Concomitant]
     Indication: ASTHMA
     Dosage: 400MCG PER DAY
     Route: 048
  5. PANSPORIN [Concomitant]
     Indication: INFECTION PROPHYLAXIS
     Dosage: 2MG PER DAY
     Route: 042
     Dates: start: 20071003, end: 20071008

REACTIONS (4)
  - ABDOMINAL PAIN [None]
  - BLOOD PRESSURE DECREASED [None]
  - PANCREATIC OPERATION [None]
  - PANCREATITIS ACUTE [None]
